FAERS Safety Report 14124334 (Version 2)
Quarter: 2017Q4

REPORT INFORMATION
  Report Type: Report from Study
  Country: US (occurrence: US)
  Receive Date: 20171025
  Receipt Date: 20171208
  Transmission Date: 20180321
  Serious: Yes (Hospitalization, Other)
  Sender: FDA-Public Use
  Company Number: US-BAYER-2017-180622

PATIENT
  Age: 56 Year
  Sex: Female

DRUGS (14)
  1. POLYETHYLENE GLYCOL [Concomitant]
     Active Substance: POLYETHYLENE GLYCOLS
     Dosage: UNK
  2. IRON [Concomitant]
     Active Substance: IRON
  3. METFORMIN [Concomitant]
     Active Substance: METFORMIN HYDROCHLORIDE
  4. AZITHROMYCIN ANHYDROUS. [Concomitant]
     Active Substance: AZITHROMYCIN ANHYDROUS
     Dosage: UNK
  5. PERCOCET [Concomitant]
     Active Substance: ACETAMINOPHEN\OXYCODONE HYDROCHLORIDE
  6. INSULIN [Concomitant]
     Active Substance: INSULIN NOS
     Dosage: UNK
  7. OXYCONTIN [Concomitant]
     Active Substance: OXYCODONE HYDROCHLORIDE
     Dosage: UNK
  8. STIVARGA [Suspect]
     Active Substance: REGORAFENIB
     Indication: GASTROINTESTINAL STROMAL TUMOUR
     Dosage: 160 MG, ONCE DAILY FOR 21/28 DAYS
     Route: 048
     Dates: start: 20170908, end: 2017
  9. STIVARGA [Suspect]
     Active Substance: REGORAFENIB
     Indication: GASTROINTESTINAL STROMAL TUMOUR
     Dosage: 160 MG, ONCE DAILY FOR 21/28 DAYS
     Route: 048
     Dates: start: 2017
  10. FISH OIL [Concomitant]
     Active Substance: FISH OIL
  11. MORPHINE [Concomitant]
     Active Substance: MORPHINE
  12. STOOL SOFTENER (DOCUSATE) [Concomitant]
     Active Substance: DOCUSATE
     Dosage: UNK
  13. IRON [FERROUS SULFATE] [Concomitant]
  14. OXYCODONE AND ACETAMINOPHEN [Concomitant]
     Active Substance: ACETAMINOPHEN\OXYCODONE HYDROCHLORIDE
     Dosage: UNK

REACTIONS (7)
  - Pneumonia [Recovering/Resolving]
  - Blood potassium decreased [Unknown]
  - Drug dose omission [Unknown]
  - Stomatitis [None]
  - Blood glucose abnormal [Unknown]
  - Dry mouth [Unknown]
  - Back pain [None]

NARRATIVE: CASE EVENT DATE: 2017
